FAERS Safety Report 10870316 (Version 1)
Quarter: 2015Q1

REPORT INFORMATION
  Report Type: Spontaneous
  Country: US (occurrence: US)
  Receive Date: 20150226
  Receipt Date: 20150226
  Transmission Date: 20150721
  Serious: Yes (Other)
  Sender: FDA-Public Use
  Company Number: US-GLAXOSMITHKLINE-US2015011286

PATIENT
  Sex: Female

DRUGS (1)
  1. ADVAIR HFA [Suspect]
     Active Substance: FLUTICASONE PROPIONATE\SALMETEROL XINAFOATE
     Indication: ASTHMA
     Dosage: 250/50 UG AND 500/50 UG WHEN SICK
     Route: 055

REACTIONS (5)
  - Malaise [Unknown]
  - Dyspnoea exertional [Unknown]
  - Disability [Not Recovered/Not Resolved]
  - Neoplasm malignant [Unknown]
  - Dependence [Unknown]
